APPROVED DRUG PRODUCT: BYSTOLIC
Active Ingredient: NEBIVOLOL HYDROCHLORIDE
Strength: EQ 20MG BASE
Dosage Form/Route: TABLET;ORAL
Application: N021742 | Product #005 | TE Code: AB
Applicant: ALLERGAN SALES LLC
Approved: Oct 8, 2008 | RLD: Yes | RS: Yes | Type: RX